FAERS Safety Report 5315344-9 (Version None)
Quarter: 2007Q2

REPORT INFORMATION
  Report Type: 
  Country: None (occurrence: None)
  Receive Date: 20070427
  Receipt Date: 20070419
  Transmission Date: 20071010
  Serious: Yes (Life-Threatening, Hospitalization, Disabling)
  Sender: FDA-Public Use
  Company Number: 20073743

PATIENT
  Sex: Female

DRUGS (3)
  1. LIORESAL [Suspect]
     Indication: MUSCLE SPASTICITY
     Dosage: 50 MG, DAILY, INTRATHECAL
     Route: 037
     Dates: start: 20070417, end: 20070419
  2. VALIUM [Concomitant]
  3. TIZANIDINE HCL [Concomitant]

REACTIONS (9)
  - BRADYCARDIA [None]
  - BRAIN DAMAGE [None]
  - CARDIAC ARREST [None]
  - LOSS OF CONSCIOUSNESS [None]
  - PNEUMONIA ASPIRATION [None]
  - POST PROCEDURAL COMPLICATION [None]
  - RESPIRATORY ARREST [None]
  - SALIVARY HYPERSECRETION [None]
  - VOMITING [None]
